FAERS Safety Report 8428090-X (Version None)
Quarter: 2012Q2

REPORT INFORMATION
  Report Type: 
  Country: None (occurrence: None)
  Receive Date: 20120611
  Receipt Date: 20120315
  Transmission Date: 20120825
  Serious: No
  Sender: FDA-Public Use
  Company Number: US-ASTRAZENECA-2012SE17885

PATIENT
  Sex: Male

DRUGS (1)
  1. RHINOCORT [Suspect]
     Indication: RHINITIS SEASONAL
     Dosage: 2 SPRAYS, QD
     Route: 045

REACTIONS (1)
  - NASAL CONGESTION [None]
